FAERS Safety Report 21843057 (Version 3)
Quarter: 2025Q1

REPORT INFORMATION
  Report Type: Spontaneous
  Country: US (occurrence: US)
  Receive Date: 20230110
  Receipt Date: 20250128
  Transmission Date: 20250408
  Serious: Yes (Hospitalization, Other)
  Sender: PFIZER
  Company Number: US-PFIZER INC-PV202300004079

PATIENT
  Age: 76 Year
  Sex: Male

DRUGS (6)
  1. VYNDAMAX [Suspect]
     Active Substance: TAFAMIDIS
     Indication: Amyloidosis
     Dates: start: 2022
  2. VYNDAMAX [Suspect]
     Active Substance: TAFAMIDIS
     Indication: Cardiomyopathy
     Dosage: ONE 61 MG TAFAMIDIS CAPSULE ORALLY ONCE DAILY
     Route: 048
  3. VYNDAMAX [Suspect]
     Active Substance: TAFAMIDIS
     Indication: Cardiac disorder
     Dosage: TAKE 1 CAPSULE (61 MG TOTAL) BY MOUTH DAILY
     Route: 048
  4. NORVASC [Concomitant]
     Active Substance: AMLODIPINE BESYLATE
  5. NITROSTAT [Concomitant]
     Active Substance: NITROGLYCERIN
     Route: 060
  6. NEURONTIN [Concomitant]
     Active Substance: GABAPENTIN
     Indication: Burning sensation
     Route: 048

REACTIONS (3)
  - Prostatic disorder [Unknown]
  - Carpal tunnel syndrome [Unknown]
  - Off label use [Unknown]

NARRATIVE: CASE EVENT DATE: 20220101
